FAERS Safety Report 5299011-6 (Version None)
Quarter: 2007Q2

REPORT INFORMATION
  Report Type: 
  Country: None (occurrence: None)
  Receive Date: 20070417
  Receipt Date: 20070413
  Transmission Date: 20071010
  Serious: Yes (Hospitalization)
  Sender: FDA-Public Use
  Company Number: FR-AVENTIS-200711037FR

PATIENT
  Age: 83 Year
  Sex: Male

DRUGS (4)
  1. FLAGYL [Suspect]
     Route: 048
     Dates: start: 20060615
  2. TAHOR [Suspect]
     Route: 048
     Dates: start: 20060615
  3. ANTINEOPLASTIC AGENTS [Suspect]
     Route: 048
     Dates: start: 20060824, end: 20060828
  4. RETINAT [Concomitant]

REACTIONS (2)
  - CONVULSION [None]
  - ENCEPHALOPATHY [None]
